FAERS Safety Report 8861489 (Version 1)
Quarter: 2012Q4

REPORT INFORMATION
  Report Type: Spontaneous
  Country: US (occurrence: None)
  Receive Date: 20121025
  Receipt Date: 20121025
  Transmission Date: 20130627
  Serious: Yes (Hospitalization, Other)
  Sender: FDA-Public Use
  Company Number: None

PATIENT
  Age: 75 Year
  Sex: Male

DRUGS (1)
  1. FLECAINIDE [Suspect]
     Route: 048

REACTIONS (4)
  - Fatigue [None]
  - Dizziness [None]
  - Vision blurred [None]
  - Presyncope [None]
